FAERS Safety Report 8186434-0 (Version None)
Quarter: 2012Q1

REPORT INFORMATION
  Report Type: 
  Country: None (occurrence: None)
  Receive Date: 20120305
  Receipt Date: 20120305
  Transmission Date: 20120608
  Serious: Yes (Death)
  Sender: FDA-Public Use
  Company Number: None

PATIENT
  Age: 60 Year
  Sex: Male

DRUGS (8)
  1. FILGRASTIM [Concomitant]
  2. GLIPIZIDE [Concomitant]
  3. LOSARTAN POTASSIUM [Concomitant]
  4. FLUOXETINE HCL [Concomitant]
  5. DEXAMETHASONE [Concomitant]
  6. OMEPRAZOLE [Concomitant]
  7. CARVEDILOL [Concomitant]
  8. REVLIMID [Suspect]
     Indication: MULTIPLE MYELOMA
     Dosage: 5 MG QD X 21/28 DAYS BY MOUTH
     Route: 048
     Dates: start: 20090901, end: 20110901

REACTIONS (7)
  - BRADYCARDIA [None]
  - PANCYTOPENIA [None]
  - SEPSIS [None]
  - BLOOD PRESSURE DECREASED [None]
  - PULSE ABSENT [None]
  - CARDIAC FAILURE CONGESTIVE [None]
  - LACTIC ACIDOSIS [None]
